FAERS Safety Report 5366700-4 (Version None)
Quarter: 2007Q2

REPORT INFORMATION
  Report Type: 
  Country: None (occurrence: None)
  Receive Date: 20070622
  Receipt Date: 20060515
  Transmission Date: 20071010
  Serious: No
  Sender: FDA-Public Use
  Company Number: US-ASTRAZENECA-2006UW09497

PATIENT
  Age: 4 Year
  Sex: Female

DRUGS (2)
  1. RHINOCORT [Suspect]
     Route: 045
  2. SUDAFED COLD [Concomitant]

REACTIONS (3)
  - ABNORMAL BEHAVIOUR [None]
  - EAR INFECTION [None]
  - FUNGAL INFECTION [None]
